FAERS Safety Report 9410474 (Version 1)
Quarter: 2013Q3

REPORT INFORMATION
  Report Type: Spontaneous
  Country: US (occurrence: None)
  Receive Date: 20130718
  Receipt Date: 20130718
  Transmission Date: 20140515
  Serious: Yes (Hospitalization)
  Sender: FDA-Public Use
  Company Number: None

PATIENT
  Age: 18 Year
  Sex: Female
  Weight: 50.5 kg

DRUGS (3)
  1. CISPLATIN [Suspect]
  2. CYCLOPHOSPHAMIDE [Suspect]
  3. VINCRISTINE SULFATE [Suspect]

REACTIONS (8)
  - Pyrexia [None]
  - Musculoskeletal pain [None]
  - Abdominal pain [None]
  - Pneumonitis chemical [None]
  - Colitis [None]
  - Device leakage [None]
  - Device related infection [None]
  - Fungal infection [None]
